FAERS Safety Report 21476741 (Version 1)
Quarter: 2022Q4

REPORT INFORMATION
  Report Type: Report from Study
  Country: CA (occurrence: CA)
  Receive Date: 20221019
  Receipt Date: 20221019
  Transmission Date: 20230112
  Serious: Yes (Other)
  Sender: FDA-Public Use
  Company Number: CA-JNJFOC-20220955883

PATIENT
  Age: 56 Year
  Sex: Female
  Weight: 59 kg

DRUGS (2)
  1. REMICADE [Suspect]
     Active Substance: INFLIXIMAB
     Indication: Colitis ulcerative
     Dosage: THE PATIENT CANCELLED 26-SEP-2022 APPOINTMENT
     Route: 042
  2. COVID-19 VACCINE [Concomitant]
     Indication: COVID-19 prophylaxis
     Dosage: VACCINATED X3
     Route: 065

REACTIONS (3)
  - Colitis ulcerative [Unknown]
  - COVID-19 [Unknown]
  - Constipation [Unknown]

NARRATIVE: CASE EVENT DATE: 20220101
